FAERS Safety Report 8507050-4 (Version None)
Quarter: 2012Q3

REPORT INFORMATION
  Report Type: 
  Country: None (occurrence: None)
  Receive Date: 20120712
  Receipt Date: 20120706
  Transmission Date: 20120928
  Serious: Yes (Death, Life-Threatening, Hospitalization, Disabling)
  Sender: FDA-Public Use
  Company Number: DE-CELGENEUS-062-C5013-09020582

PATIENT
  Age: 67 Year
  Sex: Male
  Weight: 78 kg

DRUGS (15)
  1. KALIUM [Concomitant]
     Dosage: 4 GRAM
     Route: 048
     Dates: start: 20090127, end: 20090211
  2. THALIDOMIDE [Suspect]
     Indication: MULTIPLE MYELOMA
     Dosage: 200 MILLIGRAM
     Route: 048
     Dates: start: 20090129, end: 20090210
  3. METAMIZOL [Concomitant]
     Indication: PAIN
     Dosage: 2000 MILLIGRAM
     Route: 048
     Dates: start: 20081220, end: 20090216
  4. LEVOTHYROXINE SODIUM [Concomitant]
     Indication: HYPOTHYROIDISM
     Dosage: 25 MICROGRAM
     Route: 048
     Dates: start: 20081220, end: 20090216
  5. MELPHALAN HYDROCHLORIDE [Suspect]
     Indication: MULTIPLE MYELOMA
     Dosage: .25 MILLIGRAM/KILOGRAM
     Route: 065
     Dates: start: 20090129, end: 20090202
  6. LACTULOSE [Concomitant]
     Indication: CONSTIPATION PROPHYLAXIS
     Dosage: 3.34 MILLIGRAM
     Route: 048
     Dates: start: 20090128, end: 20090216
  7. TRAMADOL HCL [Concomitant]
     Indication: PAIN
     Dosage: 200 MILLIGRAM
     Route: 048
     Dates: start: 20090128, end: 20090208
  8. NADROPARIN [Concomitant]
     Indication: THROMBOSIS PROPHYLAXIS
     Dosage: .3 MILLILITER
     Route: 058
     Dates: start: 20090128, end: 20090202
  9. PREDNISONE [Suspect]
     Indication: MULTIPLE MYELOMA
     Dosage: 2 MILLIGRAM
     Route: 065
     Dates: start: 20090129, end: 20090202
  10. PANTOPRAZOLE [Concomitant]
     Indication: PROPHYLAXIS
     Dosage: 40 MILLIGRAM
     Route: 048
     Dates: start: 20081220, end: 20090216
  11. TAMSULOSIN HCL [Concomitant]
     Indication: PROPHYLAXIS
     Dosage: .4 MILLIGRAM
     Route: 048
     Dates: start: 20090129, end: 20090211
  12. ALLOPURINOL [Concomitant]
     Dosage: 300 MILLIGRAM
     Route: 048
     Dates: start: 20090130, end: 20090201
  13. ASPIRIN [Concomitant]
     Indication: THROMBOSIS PROPHYLAXIS
     Dosage: 100 MILLIGRAM
     Route: 048
     Dates: start: 20090129, end: 20090208
  14. AMPHOTERICIN B [Concomitant]
     Indication: PROPHYLAXIS
     Dosage: 200 MILLIGRAM
     Route: 048
     Dates: start: 20090130, end: 20090201
  15. NADROPARIN [Concomitant]
     Dosage: .3 MILLILITER
     Route: 058
     Dates: start: 20090209, end: 20090209

REACTIONS (8)
  - NAUSEA [None]
  - FEBRILE NEUTROPENIA [None]
  - SPINAL PAIN [None]
  - COUGH [None]
  - HEPATITIS B [None]
  - MULTI-ORGAN FAILURE [None]
  - DIZZINESS [None]
  - SEPSIS [None]
